FAERS Safety Report 10866591 (Version 2)
Quarter: 2015Q2

REPORT INFORMATION
  Report Type: Spontaneous
  Country: GB (occurrence: None)
  Receive Date: 20150220
  Receipt Date: 20150604
  Transmission Date: 20150821
  Serious: Yes (Death, Hospitalization)
  Sender: FDA-Public Use
  Company Number: 2015FE00522

PATIENT
  Age: 8 Day
  Sex: Male

DRUGS (2)
  1. VENTOLIN [Concomitant]
     Active Substance: ALBUTEROL SULFATE
  2. PROPESS [Suspect]
     Active Substance: DINOPROSTONE
     Indication: LABOUR INDUCTION
     Route: 064
     Dates: start: 20141228, end: 20141228

REACTIONS (6)
  - Hypoxic-ischaemic encephalopathy [None]
  - Death neonatal [None]
  - Maternal drugs affecting foetus [None]
  - Foetal distress syndrome [None]
  - Contraindication to medical treatment [None]
  - Drug monitoring procedure not performed [None]

NARRATIVE: CASE EVENT DATE: 20141228
